FAERS Safety Report 9747790 (Version 2)
Quarter: 2013Q4

REPORT INFORMATION
  Report Type: Spontaneous
  Country: US (occurrence: US)
  Receive Date: 20131212
  Receipt Date: 20131212
  Transmission Date: 20140711
  Serious: No
  Sender: FDA-Public Use
  Company Number: US-TEVA-385990USA

PATIENT
  Age: 26 Year
  Sex: Female
  Weight: 62.65 kg

DRUGS (3)
  1. PARAGARD 380A [Suspect]
     Indication: CONTRACEPTION
     Dates: start: 20120517, end: 20130113
  2. PYRIDIUM [Concomitant]
     Indication: PAIN
  3. DOXYCYCLINE [Concomitant]
     Indication: RASH

REACTIONS (1)
  - Device expulsion [Recovered/Resolved]
